FAERS Safety Report 19957854 (Version 1)
Quarter: 2021Q4

REPORT INFORMATION
  Report Type: Spontaneous
  Country: GB (occurrence: GB)
  Receive Date: 20211015
  Receipt Date: 20211015
  Transmission Date: 20220303
  Serious: Yes (Disabling)
  Sender: FDA-Public Use
  Company Number: None

PATIENT
  Age: 25 Year
  Sex: Female

DRUGS (3)
  1. TACROLIMUS [Suspect]
     Active Substance: TACROLIMUS
     Indication: Eczema
     Route: 061
     Dates: end: 20210509
  2. TACROLIMUS [Suspect]
     Active Substance: TACROLIMUS
     Indication: Eczema
     Route: 061
     Dates: end: 20210509
  3. CLOBETASOL [Suspect]
     Active Substance: CLOBETASOL
     Indication: Eczema
     Route: 061

REACTIONS (2)
  - Medication error [Unknown]
  - Adverse drug reaction [Not Recovered/Not Resolved]

NARRATIVE: CASE EVENT DATE: 20210510
